FAERS Safety Report 13654805 (Version 1)
Quarter: 2017Q2

REPORT INFORMATION
  Report Type: Spontaneous
  Country: US (occurrence: US)
  Receive Date: 20170614
  Receipt Date: 20170614
  Transmission Date: 20170830
  Serious: Yes (Disabling)
  Sender: FDA-Public Use
  Company Number: None

PATIENT
  Age: 76 Year
  Sex: Female
  Weight: 58.5 kg

DRUGS (20)
  1. FOLIC ACID. [Concomitant]
     Active Substance: FOLIC ACID
  2. VITAMIN B12 [Concomitant]
     Active Substance: CYANOCOBALAMIN
  3. LEVOFLOXACIN. [Suspect]
     Active Substance: LEVOFLOXACIN
     Indication: BRONCHITIS
     Dosage: ?          QUANTITY:1 CAPSULE(S);?
     Route: 048
     Dates: start: 20161010, end: 20161014
  4. LISINOPRIL. [Concomitant]
     Active Substance: LISINOPRIL
  5. METHANAMINE HIPPURATE [Concomitant]
  6. SIMVASTATIN. [Concomitant]
     Active Substance: SIMVASTATIN
  7. MULTIVITAMIN [Concomitant]
     Active Substance: VITAMINS
  8. DIPHENHYDRAMINE HCL [Concomitant]
     Active Substance: DIPHENHYDRAMINE HYDROCHLORIDE
  9. MELATONIN [Concomitant]
     Active Substance: MELATONIN
  10. TRIOR FENOFIBRATE [Concomitant]
  11. B6 [Concomitant]
     Active Substance: PYRIDOXINE HYDROCHLORIDE
  12. MAGNESIUM [Concomitant]
     Active Substance: MAGNESIUM
  13. ACETAMENAPHIN [Concomitant]
  14. FAMOTIDINE. [Concomitant]
     Active Substance: FAMOTIDINE
  15. LEVOTHYROXINE. [Concomitant]
     Active Substance: LEVOTHYROXINE
  16. TRAZODONE [Concomitant]
     Active Substance: TRAZODONE HYDROCHLORIDE
  17. LOPERAMIDE HAL [Concomitant]
  18. FLOVENT HVA [Concomitant]
  19. HYDROCHLOROTHIAZIDE. [Concomitant]
     Active Substance: HYDROCHLOROTHIAZIDE
  20. VENTOLIN [Concomitant]
     Active Substance: ALBUTEROL SULFATE

REACTIONS (6)
  - Arthralgia [None]
  - Joint range of motion decreased [None]
  - Insomnia [None]
  - Musculoskeletal pain [None]
  - Loss of personal independence in daily activities [None]
  - Therapy non-responder [None]

NARRATIVE: CASE EVENT DATE: 20161012
